FAERS Safety Report 6440985-5 (Version None)
Quarter: 2009Q4

REPORT INFORMATION
  Report Type: 
  Country: None (occurrence: None)
  Receive Date: 20091116
  Receipt Date: 20091104
  Transmission Date: 20100525
  Serious: Yes (Other)
  Sender: FDA-Public Use
  Company Number: DE-BAYER-200938213GPV

PATIENT
  Age: 39 Year
  Sex: Female
  Weight: 66 kg

DRUGS (1)
  1. MIRENA [Suspect]
     Indication: ENDOMETRIOSIS
     Route: 015
     Dates: start: 20011201

REACTIONS (4)
  - DEPRESSION SUICIDAL [None]
  - GASTROINTESTINAL PAIN [None]
  - METRORRHAGIA [None]
  - SLEEP DISORDER [None]
